FAERS Safety Report 14667896 (Version 2)
Quarter: 2018Q1

REPORT INFORMATION
  Report Type: Report from Study
  Country: ZA (occurrence: ZA)
  Receive Date: 20180322
  Receipt Date: 20180328
  Transmission Date: 20180509
  Serious: Yes (Hospitalization, Other)
  Sender: FDA-Public Use
  Company Number: PHHY2018ZA047199

PATIENT
  Age: 69 Year
  Sex: Female

DRUGS (1)
  1. ACLASTA [Suspect]
     Active Substance: ZOLEDRONIC ACID
     Indication: OSTEOPOROSIS
     Dosage: 1 DF (5MG/100ML), Q12MO
     Route: 041
     Dates: start: 20180302, end: 20180302

REACTIONS (11)
  - Feeling abnormal [Unknown]
  - Gastric ulcer [Unknown]
  - Abdominal pain upper [Recovered/Resolved]
  - Gastrointestinal infection [Unknown]
  - Haematuria [Unknown]
  - Parathyroid tumour [Unknown]
  - Cystitis [Unknown]
  - Gastritis [Unknown]
  - Bladder disorder [Unknown]
  - Dyspepsia [Unknown]
  - Oesophageal ulcer [Unknown]

NARRATIVE: CASE EVENT DATE: 20180303
